FAERS Safety Report 24762303 (Version 1)
Quarter: 2024Q4

REPORT INFORMATION
  Report Type: Spontaneous
  Country: US (occurrence: US)
  Receive Date: 20241221
  Receipt Date: 20241221
  Transmission Date: 20250115
  Serious: Yes (Death, Hospitalization, Other)
  Sender: ALEXION PHARMACEUTICALS
  Company Number: US-ASTRAZENECA-202412USA016568US

PATIENT
  Age: 53 Year

DRUGS (10)
  1. SEROQUEL XR [Suspect]
     Active Substance: QUETIAPINE FUMARATE
  2. SEROQUEL XR [Suspect]
     Active Substance: QUETIAPINE FUMARATE
     Route: 048
  3. SEROQUEL XR [Suspect]
     Active Substance: QUETIAPINE FUMARATE
  4. SEROQUEL XR [Suspect]
     Active Substance: QUETIAPINE FUMARATE
     Route: 048
  5. SALICYLIC ACID [Suspect]
     Active Substance: SALICYLIC ACID
     Route: 048
  6. SALICYLIC ACID [Suspect]
     Active Substance: SALICYLIC ACID
  7. SALICYLIC ACID [Suspect]
     Active Substance: SALICYLIC ACID
     Route: 048
  8. SALICYLIC ACID [Suspect]
     Active Substance: SALICYLIC ACID
  9. SALICYLIC ACID [Suspect]
     Active Substance: SALICYLIC ACID
     Route: 048
  10. SALICYLIC ACID [Suspect]
     Active Substance: SALICYLIC ACID

REACTIONS (2)
  - Toxicity to various agents [Fatal]
  - Completed suicide [Fatal]
